FAERS Safety Report 11845268 (Version 7)
Quarter: 2019Q2

REPORT INFORMATION
  Report Type: Spontaneous
  Country: US (occurrence: US)
  Receive Date: 20151217
  Receipt Date: 20190402
  Transmission Date: 20190711
  Serious: Yes (Hospitalization, Other)
  Sender: FDA-Public Use
  Company Number: US-PFIZER INC-2015328152

PATIENT
  Age: 54 Year
  Sex: Female
  Weight: 105.2 kg

DRUGS (1)
  1. XELJANZ [Suspect]
     Active Substance: TOFACITINIB CITRATE
     Indication: RHEUMATOID ARTHRITIS
     Dosage: 5 MG, 2X/DAY
     Route: 048

REACTIONS (13)
  - Pre-existing condition improved [Unknown]
  - Fibromyalgia [Unknown]
  - Upper respiratory tract infection [Unknown]
  - Sepsis [Recovering/Resolving]
  - Bronchitis [Unknown]
  - Confusional state [Unknown]
  - Pneumonia [Recovering/Resolving]
  - Osteonecrosis [Unknown]
  - Osteoporosis [Unknown]
  - Arthritis [Unknown]
  - Rheumatoid arthritis [Unknown]
  - Therapeutic response unexpected [Unknown]
  - Pain [Recovering/Resolving]

NARRATIVE: CASE EVENT DATE: 2019
